FAERS Safety Report 4549597-1 (Version None)
Quarter: 2005Q1

REPORT INFORMATION
  Report Type: 
  Country: None (occurrence: None)
  Receive Date: 20050111
  Receipt Date: 20050104
  Transmission Date: 20050727
  Serious: Yes (Hospitalization)
  Sender: FDA-Public Use
  Company Number: CA-JNJFOC-20050101097

PATIENT
  Age: 77 Year
  Sex: Female

DRUGS (10)
  1. DURAGESIC [Suspect]
     Indication: BACK PAIN
     Dosage: ONE HALF OF A 25 UG/HR PATCH, 1 IN 72 HOURS.
     Route: 062
     Dates: start: 20040310
  2. DILTIAZEM CD [Concomitant]
  3. COMBIVENT [Concomitant]
     Route: 055
  4. COMBIVENT [Concomitant]
     Dosage: TWO PUFFS EVERY SIX HOURS.
     Route: 055
  5. ADVAIR DISKUS 100/50 [Concomitant]
     Route: 055
  6. ADVAIR DISKUS 100/50 [Concomitant]
     Dosage: 250 UG, TWO PUFFS TWICE DAILY.
     Route: 055
  7. PRAVASTATIN SODIUM [Concomitant]
  8. NITROPATCH [Concomitant]
     Route: 062
  9. ASPIRIN [Concomitant]
     Route: 049
  10. VITAMIN B-12 [Concomitant]

REACTIONS (6)
  - COMA [None]
  - HAEMATURIA [None]
  - MALAISE [None]
  - MEDICATION ERROR [None]
  - NEPHROLITHIASIS [None]
  - WEIGHT DECREASED [None]
